FAERS Safety Report 9724785 (Version 1)
Quarter: 2013Q4

REPORT INFORMATION
  Report Type: Spontaneous
  Country: GB (occurrence: GB)
  Receive Date: 20131202
  Receipt Date: 20131202
  Transmission Date: 20140711
  Serious: Yes (Other)
  Sender: FDA-Public Use
  Company Number: GB-MYLANLABS-2013S1026319

PATIENT
  Age: 36 Year
  Sex: Female
  Weight: 76 kg

DRUGS (7)
  1. VENLAFAXINE [Suspect]
     Indication: DEPRESSION
     Route: 048
     Dates: end: 20121211
  2. VENLAFAXINE [Suspect]
     Indication: DEPRESSION
     Route: 048
     Dates: start: 20121211, end: 20130805
  3. VENLAFAXINE [Suspect]
     Indication: DEPRESSION
     Route: 048
     Dates: start: 20130805, end: 20130920
  4. VENLAFAXINE [Suspect]
     Indication: DEPRESSION
     Route: 048
     Dates: start: 20130920, end: 20131018
  5. LEVOTHYROXINE [Concomitant]
     Indication: PRODUCT USED FOR UNKNOWN INDICATION
  6. NEXPLANON [Concomitant]
     Indication: CONTRACEPTION
  7. TOLTERODINE [Concomitant]
     Indication: PRODUCT USED FOR UNKNOWN INDICATION

REACTIONS (6)
  - Weight increased [Not Recovered/Not Resolved]
  - Suicide attempt [Recovered/Resolved]
  - Fatigue [Recovering/Resolving]
  - Feeling abnormal [Not Recovered/Not Resolved]
  - Disturbance in attention [Unknown]
  - Drug withdrawal syndrome [Not Recovered/Not Resolved]
